FAERS Safety Report 9682168 (Version 2)
Quarter: 2013Q4

REPORT INFORMATION
  Report Type: Report from Study
  Country: CA (occurrence: CA)
  Receive Date: 20131111
  Receipt Date: 20131111
  Transmission Date: 20140711
  Serious: Yes (Other)
  Sender: FDA-Public Use
  Company Number: CA-ROCHE-1137274

PATIENT
  Age: 52 Year
  Sex: Female
  Weight: 113.4 kg

DRUGS (16)
  1. RITUXIMAB [Suspect]
     Indication: RHEUMATOID ARTHRITIS
     Route: 042
     Dates: start: 20111020
  2. RITUXIMAB [Suspect]
     Route: 042
     Dates: start: 20120914, end: 20120914
  3. ACTEMRA [Suspect]
     Indication: RHEUMATOID ARTHRITIS
     Route: 042
     Dates: start: 20101209
  4. ACTEMRA [Suspect]
     Route: 042
     Dates: start: 20110314
  5. ACTEMRA [Suspect]
     Route: 042
     Dates: start: 20110815, end: 20110815
  6. CIMZIA [Suspect]
     Indication: RHEUMATOID ARTHRITIS
     Route: 065
     Dates: start: 2012
  7. PLAQUENIL [Concomitant]
  8. ASPIRIN [Concomitant]
  9. RAMIPRIL [Concomitant]
  10. VENTOLIN [Concomitant]
     Route: 065
  11. SYMBICORT [Concomitant]
     Route: 065
  12. LYRICA [Concomitant]
  13. VIMOVO [Concomitant]
  14. DIPHENHYDRAMINE HCL [Concomitant]
     Route: 047
     Dates: start: 20111020
  15. ACETAMINOPHEN [Concomitant]
     Route: 048
     Dates: start: 20111020
  16. METHYLPREDNISOLONE [Concomitant]
     Route: 042
     Dates: start: 20111020

REACTIONS (4)
  - Back pain [Recovered/Resolved]
  - Depression [Unknown]
  - Anxiety [Unknown]
  - Pneumonia [Recovered/Resolved]
